FAERS Safety Report 10283923 (Version 2)
Quarter: 2014Q3

REPORT INFORMATION
  Report Type: Spontaneous
  Country: US (occurrence: US)
  Receive Date: 20140708
  Receipt Date: 20140722
  Transmission Date: 20150326
  Serious: Yes (Hospitalization)
  Sender: FDA-Public Use
  Company Number: US-BAYER-2014-101070

PATIENT
  Age: 25 Year
  Sex: Female
  Weight: 50.79 kg

DRUGS (2)
  1. MIRENA [Suspect]
     Active Substance: LEVONORGESTREL
     Indication: CONTRACEPTION
     Dosage: 20 MCG/24HR, CONT
     Route: 015
     Dates: start: 20111020, end: 20130829
  2. PERCOCET [Concomitant]
     Active Substance: ACETAMINOPHEN\OXYCODONE HYDROCHLORIDE

REACTIONS (11)
  - Nerve injury [None]
  - Injury [None]
  - Uterine haemorrhage [None]
  - Device dislocation [None]
  - Peripheral nerve injury [None]
  - Device issue [None]
  - Device difficult to use [None]
  - Device use error [None]
  - Pain [None]
  - Emotional distress [None]
  - Menstruation irregular [None]

NARRATIVE: CASE EVENT DATE: 201308
